FAERS Safety Report 8896403 (Version 7)
Quarter: 2014Q1

REPORT INFORMATION
  Report Type: Spontaneous
  Country: BR (occurrence: None)
  Receive Date: 20121102
  Receipt Date: 20140116
  Transmission Date: 20141002
  Serious: Yes (Other)
  Sender: FDA-Public Use
  Company Number: VAL_00953_2012

PATIENT
  Sex: Male
  Weight: 100 kg

DRUGS (4)
  1. LOTENSIN [Suspect]
     Indication: HYPERTENSION
     Dosage: (2 DF QD ORAL), (10 MG QD ORAL)
     Route: 048
     Dates: start: 2012
  2. ACETYLSALICYLIC ACID [Concomitant]
  3. ASCORBIC ACID W/CYANOCOBALAMIN/NICOTINAMIDE [Concomitant]
  4. NOVOLIN [Concomitant]

REACTIONS (7)
  - Drug effect decreased [None]
  - Blood pressure systolic increased [None]
  - Blood pressure fluctuation [None]
  - Diabetes mellitus [None]
  - Diabetes mellitus inadequate control [None]
  - Drug ineffective [None]
  - Product quality issue [None]
